FAERS Safety Report 6209731-4 (Version None)
Quarter: 2009Q2

REPORT INFORMATION
  Report Type: 
  Country: None (occurrence: None)
  Receive Date: 20090528
  Receipt Date: 20090528
  Transmission Date: 20091009
  Serious: Yes (Other)
  Sender: FDA-Public Use
  Company Number: None

PATIENT
  Age: 66 Year
  Sex: Female
  Weight: 74.3899 kg

DRUGS (1)
  1. PRINIZIDE (GENERIC) [Suspect]
     Indication: HYPERTENSION
     Dosage: ONCE PO QD
     Route: 048
     Dates: start: 20080601

REACTIONS (1)
  - PALPITATIONS [None]
